FAERS Safety Report 20954008 (Version 2)
Quarter: 2022Q3

REPORT INFORMATION
  Report Type: Spontaneous
  Country: US (occurrence: US)
  Receive Date: 20220614
  Receipt Date: 20220629
  Transmission Date: 20221027
  Serious: No
  Sender: FDA-Public Use
  Company Number: US-NOVARTISTESTPH-NVSC2022US135738

PATIENT

DRUGS (1)
  1. PATADAY [Suspect]
     Active Substance: OLOPATADINE HYDROCHLORIDE
     Indication: Product used for unknown indication
     Dosage: 1 DRP, QD (IN EACH EYE)
     Route: 047

REACTIONS (3)
  - Vision blurred [Recovered/Resolved]
  - Product packaging issue [Unknown]
  - Liquid product physical issue [Unknown]
